FAERS Safety Report 5642925-5 (Version None)
Quarter: 2008Q1

REPORT INFORMATION
  Report Type: 
  Country: None (occurrence: None)
  Receive Date: 20080228
  Receipt Date: 20080222
  Transmission Date: 20080703
  Serious: Yes (Death)
  Sender: FDA-Public Use
  Company Number: JAFRA19402

PATIENT
  Age: 42 Year
  Sex: Female

DRUGS (3)
  1. HALDOL [Suspect]
     Indication: DELIRIUM
     Route: 041
     Dates: start: 19940505
  2. TRANXENE [Concomitant]
     Indication: DELIRIUM
     Route: 030
  3. TRANXENE [Concomitant]
     Indication: DEPRESSION
     Route: 030

REACTIONS (1)
  - PULMONARY OEDEMA [None]
